FAERS Safety Report 8815366 (Version 2)
Quarter: 2013Q3

REPORT INFORMATION
  Report Type: Report from Study
  Country: CZ (occurrence: CZ)
  Receive Date: 20120928
  Receipt Date: 20130802
  Transmission Date: 20140515
  Serious: Yes (Hospitalization)
  Sender: FDA-Public Use
  Company Number: CZ-ABBOTT-12P-217-0985745-00

PATIENT
  Age: 35 Year
  Sex: Male
  Weight: 78 kg

DRUGS (4)
  1. HUMIRA [Suspect]
     Indication: PSORIATIC ARTHROPATHY
     Route: 058
     Dates: start: 20100315, end: 20120910
  2. HUMIRA [Suspect]
     Indication: PSORIASIS
  3. AERIUS [Concomitant]
     Indication: PRODUCT USED FOR UNKNOWN INDICATION
  4. ASCORUTIN [Concomitant]
     Indication: PRODUCT USED FOR UNKNOWN INDICATION
     Dosage: 3-0-3

REACTIONS (9)
  - Henoch-Schonlein purpura [Unknown]
  - Abdominal discomfort [Unknown]
  - Oedema peripheral [Unknown]
  - Hypersensitivity vasculitis [Recovered/Resolved]
  - Pyrexia [Unknown]
  - Nausea [Unknown]
  - Eructation [Unknown]
  - Abdominal distension [Unknown]
  - Hypersensitivity vasculitis [Recovered/Resolved]
